FAERS Safety Report 13030710 (Version 1)
Quarter: 2016Q4

REPORT INFORMATION
  Report Type: Spontaneous
  Country: BR (occurrence: BR)
  Receive Date: 20161215
  Receipt Date: 20161215
  Transmission Date: 20170207
  Serious: Yes (Other)
  Sender: FDA-Public Use
  Company Number: BR-PFIZER INC-2016527677

PATIENT
  Age: 64 Year
  Sex: Female

DRUGS (5)
  1. XALKORI [Suspect]
     Active Substance: CRIZOTINIB
     Indication: LUNG ADENOCARCINOMA
     Dosage: UNK
  2. CRESTOR [Concomitant]
     Active Substance: ROSUVASTATIN CALCIUM
     Dosage: UNK
  3. INSULIN [Concomitant]
     Active Substance: INSULIN NOS
     Dosage: UNK
  4. XARELTO [Concomitant]
     Active Substance: RIVAROXABAN
  5. ROSUVASTATIN. [Concomitant]
     Active Substance: ROSUVASTATIN

REACTIONS (2)
  - Rash [Unknown]
  - Pruritus [Unknown]
